FAERS Safety Report 10188104 (Version 2)
Quarter: 2014Q2

REPORT INFORMATION
  Report Type: Report from Study
  Country: BR (occurrence: BR)
  Receive Date: 20140522
  Receipt Date: 20140522
  Transmission Date: 20141212
  Serious: Yes (Life-Threatening, Hospitalization)
  Sender: FDA-Public Use
  Company Number: BR-NOVOPROD-398056

PATIENT
  Age: 61 Year
  Sex: Female
  Weight: 76.2 kg

DRUGS (1)
  1. LIRAGLUTIDE FLEXPEN [Suspect]
     Indication: TYPE 2 DIABETES MELLITUS
     Dosage: 1.8,MG,QD
     Route: 058
     Dates: start: 20111017, end: 20130309

REACTIONS (2)
  - Coronary revascularisation [Recovered/Resolved]
  - Myocardial ischaemia [Recovered/Resolved]
